FAERS Safety Report 22659960 (Version 1)
Quarter: 2023Q2

REPORT INFORMATION
  Report Type: Report from Study
  Country: US (occurrence: US)
  Receive Date: 20230630
  Receipt Date: 20230630
  Transmission Date: 20230721
  Serious: Yes (Other)
  Sender: FDA-Public Use
  Company Number: US-ABBVIE-5308934

PATIENT
  Age: 68 Year
  Sex: Male

DRUGS (2)
  1. SKYRIZI [Suspect]
     Active Substance: RISANKIZUMAB-RZAA
     Indication: Crohn^s disease
     Dosage: INJECT 2.4 ML UNDER THE SKIN ONCE EVERY 8 WEEKS
     Route: 058
     Dates: start: 20221229
  2. SYNTHROID [Concomitant]
     Active Substance: LEVOTHYROXINE SODIUM
     Indication: Product used for unknown indication
     Route: 048

REACTIONS (10)
  - Stoma closure [Recovering/Resolving]
  - Eczema [Recovered/Resolved]
  - Muscle spasms [Recovering/Resolving]
  - Flatulence [Recovering/Resolving]
  - Fatigue [Unknown]
  - Clostridium difficile infection [Recovered/Resolved]
  - Cough [Unknown]
  - Throat clearing [Unknown]
  - Upper respiratory tract congestion [Recovering/Resolving]
  - Dysphonia [Unknown]

NARRATIVE: CASE EVENT DATE: 20230401
